FAERS Safety Report 13737825 (Version 1)
Quarter: 2017Q3

REPORT INFORMATION
  Report Type: Spontaneous
  Country: US (occurrence: US)
  Receive Date: 20170710
  Receipt Date: 20170710
  Transmission Date: 20171127
  Serious: Yes (Hospitalization, Other)
  Sender: FDA-Public Use
  Company Number: US-SAOL THERAPEUTICS-2016SAO00591

PATIENT
  Sex: Male
  Weight: 38.95 kg

DRUGS (12)
  1. LIORESAL [Suspect]
     Active Substance: BACLOFEN
     Indication: MUSCLE SPASTICITY
     Dosage: 1025 ?G, \DAY
     Route: 037
  2. PRILOSEC [Concomitant]
     Active Substance: OMEPRAZOLE MAGNESIUM
     Dosage: 40 MG, 1X/DAY
  3. MELATONIN [Concomitant]
     Active Substance: MELATONIN
     Dosage: 5 MG, 1X/DAY
  4. KEPPRA [Concomitant]
     Active Substance: LEVETIRACETAM
  5. FLEET ENEMA [Concomitant]
     Active Substance: SODIUM PHOSPHATE, DIBASIC\SODIUM PHOSPHATE, MONOBASIC
     Dosage: UNK, AS NEEDED
  6. BACLOFEN. [Concomitant]
     Active Substance: BACLOFEN
     Dosage: 30 MG, 3X/DAY
     Route: 048
  7. VALIUM [Concomitant]
     Active Substance: DIAZEPAM
     Dosage: 4 MG, 3X/DAY
  8. UNSPECIFIED NEBULIZER MEDICATION [Concomitant]
     Dosage: UNK, AS NEEDED
  9. LIORESAL [Suspect]
     Active Substance: BACLOFEN
     Indication: CEREBRAL PALSY
  10. MIRALAX [Concomitant]
     Active Substance: POLYETHYLENE GLYCOL 3350
     Dosage: 17 G, 1X/DAY
  11. TYLENOL [Concomitant]
     Active Substance: ACETAMINOPHEN
     Dosage: UNK, AS NEEDED
  12. ALBUTEROL. [Concomitant]
     Active Substance: ALBUTEROL
     Dosage: UNK, AS NEEDED

REACTIONS (4)
  - Muscle spasticity [Recovered/Resolved]
  - Therapy non-responder [Recovered/Resolved]
  - Hypotonia [Recovered/Resolved]
  - Device damage [Recovered/Resolved]
